FAERS Safety Report 5472730-4 (Version None)
Quarter: 2007Q4

REPORT INFORMATION
  Report Type: 
  Country: None (occurrence: None)
  Receive Date: 20071001
  Receipt Date: 20061017
  Transmission Date: 20080405
  Serious: No
  Sender: FDA-Public Use
  Company Number: US-ASTRAZENECA-2006UW20034

PATIENT
  Age: 62 Year
  Sex: Female

DRUGS (5)
  1. ARIMIDEX [Suspect]
     Route: 048
     Dates: start: 20051101
  2. FIBER SUPPLEMENT [Concomitant]
  3. MULTI-VITAMIN [Concomitant]
  4. COQ10 [Concomitant]
  5. AMBIEN [Concomitant]

REACTIONS (1)
  - NAIL DISORDER [None]
